FAERS Safety Report 4325524-7 (Version None)
Quarter: 2004Q1

REPORT INFORMATION
  Report Type: 
  Country: None (occurrence: None)
  Receive Date: 20040324
  Receipt Date: 20040304
  Transmission Date: 20041129
  Serious: Yes (Hospitalization)
  Sender: FDA-Public Use
  Company Number: US_981214005

PATIENT
  Age: 69 Year
  Sex: Female
  Weight: 89 kg

DRUGS (3)
  1. HUMALOG [Suspect]
     Indication: DIABETES MELLITUS
     Dosage: 20 U/BID
     Route: 058
  2. HUMULIN N [Suspect]
     Indication: DIABETES MELLITUS
     Dosage: 30 U/BID
  3. HUMULIN R [Suspect]
     Indication: DIABETES MELLITUS

REACTIONS (9)
  - ABDOMINAL ABSCESS [None]
  - BLISTER [None]
  - CARDIAC DISORDER [None]
  - CELLULITIS [None]
  - FLUID RETENTION [None]
  - RASH [None]
  - RENAL DISORDER [None]
  - VESICAL FISTULA [None]
  - WEIGHT INCREASED [None]
